FAERS Safety Report 21146413 (Version 1)
Quarter: 2022Q3

REPORT INFORMATION
  Report Type: Other
  Country: US (occurrence: None)
  Receive Date: 20220729
  Receipt Date: 20220729
  Transmission Date: 20221026
  Serious: Yes (Hospitalization, Other)
  Sender: FDA-Public Use
  Company Number: US-ROCHE-3146947

PATIENT
  Age: 45 Year
  Sex: Female
  Weight: 102 kg

DRUGS (7)
  1. MYCOPHENOLATE MOFETIL [Suspect]
     Active Substance: MYCOPHENOLATE MOFETIL
     Indication: Immunosuppression
     Route: 065
  2. METHYLPREDNISOLONE [Suspect]
     Active Substance: METHYLPREDNISOLONE
     Indication: Prophylaxis against transplant rejection
     Route: 042
  3. TACROLIMUS [Suspect]
     Active Substance: TACROLIMUS
     Indication: Immunosuppression
     Route: 065
  4. PREDNISONE [Suspect]
     Active Substance: PREDNISONE
     Indication: Immunosuppression
     Route: 065
  5. REMDESIVIR [Suspect]
     Active Substance: REMDESIVIR
     Indication: COVID-19 prophylaxis
     Dosage: FOR 1 DOSE ON THE SAME DAY OF PRESENTATION
     Route: 042
  6. REMDESIVIR [Suspect]
     Active Substance: REMDESIVIR
     Dosage: FOR 4 ADDITIONAL DOSES
     Route: 042
  7. MODERNA COVID-19 VACCINE [Concomitant]
     Active Substance: ELASOMERAN
     Indication: COVID-19 prophylaxis

REACTIONS (5)
  - COVID-19 [Recovered/Resolved]
  - Acute kidney injury [Recovering/Resolving]
  - Thrombotic microangiopathy [Unknown]
  - Normocytic anaemia [Unknown]
  - Escherichia infection [Unknown]
